FAERS Safety Report 19360948 (Version 1)
Quarter: 2021Q2

REPORT INFORMATION
  Report Type: Spontaneous
  Country: US (occurrence: US)
  Receive Date: 20210601
  Receipt Date: 20210601
  Transmission Date: 20210717
  Serious: Yes (Other)
  Sender: FDA-Public Use
  Company Number: US-PURDUE-USA-2020-0264755

PATIENT
  Sex: Male

DRUGS (4)
  1. TRAMADOL CR TABLETS (RHODES 21?745) [Suspect]
     Active Substance: TRAMADOL
     Indication: PAIN
     Dosage: UNK
     Route: 048
     Dates: start: 2000, end: 2015
  2. LORTAB [Suspect]
     Active Substance: ACETAMINOPHEN\HYDROCODONE BITARTRATE
     Indication: PAIN
     Dosage: 1 DF, 10/325 MG, SEVERAL TIMES A DAY
     Route: 048
     Dates: start: 2000, end: 2015
  3. PERCOCET                           /00446701/ [Suspect]
     Active Substance: ACETAMINOPHEN\OXYCODONE HYDROCHLORIDE\OXYCODONE TEREPHTHALATE
     Indication: PAIN
     Dosage: UNK
     Route: 048
     Dates: start: 2000, end: 2015
  4. AVINZA [Suspect]
     Active Substance: MORPHINE SULFATE
     Indication: PAIN
     Dosage: 1 DF, BID (MORNING AND BEDTIME)
     Route: 048
     Dates: start: 2000, end: 2015

REACTIONS (2)
  - Drug dependence [Recovered/Resolved]
  - Spinal operation [Unknown]
